FAERS Safety Report 13462559 (Version 2)
Quarter: 2017Q2

REPORT INFORMATION
  Report Type: Spontaneous
  Country: DK (occurrence: DK)
  Receive Date: 20170420
  Receipt Date: 20170420
  Transmission Date: 20170830
  Serious: Yes (Hospitalization)
  Sender: FDA-Public Use
  Company Number: DK-ASCEND THERAPEUTICS-1065578

PATIENT
  Age: 38 Year
  Sex: Female

DRUGS (5)
  1. ORGALUTRAN [Concomitant]
     Active Substance: GANIRELIX ACETATE
  2. PUREGON (FOLLITROPIN ALFA) [Concomitant]
  3. ESTROGEL [Suspect]
     Active Substance: ESTRADIOL
     Indication: INFERTILITY FEMALE
     Dates: start: 20140401
  4. SIMVASTATIN. [Concomitant]
     Active Substance: SIMVASTATIN
  5. GONAPEPTYL (TRIPTORLIN ACETATE) [Concomitant]

REACTIONS (2)
  - Cerebral thrombosis [Recovered/Resolved with Sequelae]
  - Hemiplegia [Unknown]
